FAERS Safety Report 5020444-7 (Version None)
Quarter: 2006Q2

REPORT INFORMATION
  Report Type: 
  Country: None (occurrence: None)
  Receive Date: 20060602
  Receipt Date: 20060522
  Transmission Date: 20061013
  Serious: Yes (Death, Hospitalization, Other)
  Sender: FDA-Public Use
  Company Number: 2006-01246

PATIENT
  Age: 53 Year
  Sex: Male

DRUGS (8)
  1. VELCADE [Suspect]
     Indication: MULTIPLE MYELOMA
     Dosage: INTRAVENOUS
     Route: 042
     Dates: start: 20060101
  2. DIFLUCAN (FLUCONAZOLE) CAPSULE [Concomitant]
  3. KAJOS (POTASSIUM CITRATE) SOLUTION (EXCEPT SYRUP) [Concomitant]
  4. ETHYLMORPHINE (ETHYLMORPHINE) SOLUTION (EXCEPT SYRUP) [Concomitant]
  5. PREDNISOLONE [Concomitant]
  6. ALLOPURINOL ^NORDIC^ (ALLOPURINOL) TABLET [Concomitant]
  7. PANTOPRAZOLE (PANTOPRAZOLE) TABLET [Concomitant]
  8. VALTREX [Concomitant]

REACTIONS (2)
  - GASTROINTESTINAL HAEMORRHAGE [None]
  - PANCYTOPENIA [None]
